FAERS Safety Report 9788396 (Version 1)
Quarter: 2013Q4

REPORT INFORMATION
  Report Type: Spontaneous
  Country: CA (occurrence: CA)
  Receive Date: 20131230
  Receipt Date: 20131230
  Transmission Date: 20140711
  Serious: Yes (Other)
  Sender: FDA-Public Use
  Company Number: PHHY2013CA152712

PATIENT
  Sex: Male
  Weight: 3.63 kg

DRUGS (4)
  1. METHYLPHENIDATE [Suspect]
     Route: 064
  2. METHYLPHENIDATE [Suspect]
     Route: 063
  3. FLUOXETINE [Concomitant]
     Route: 064
  4. SERTRALINE [Concomitant]
     Route: 063

REACTIONS (3)
  - Neonatal aspiration [Recovered/Resolved]
  - Maternal exposure during pregnancy [Unknown]
  - Exposure during breast feeding [Unknown]
